FAERS Safety Report 20893444 (Version 1)
Quarter: 2022Q2

REPORT INFORMATION
  Report Type: Spontaneous
  Country: IL (occurrence: IL)
  Receive Date: 20220531
  Receipt Date: 20220531
  Transmission Date: 20220721
  Serious: Yes (Other)
  Sender: FDA-Public Use
  Company Number: IL-SUN PHARMACEUTICAL INDUSTRIES LTD-2022R1-338213

PATIENT
  Age: 57 Year
  Sex: Male

DRUGS (1)
  1. PREDNISONE [Suspect]
     Active Substance: PREDNISONE
     Indication: Cutaneous vasculitis
     Dosage: 1 MILLIGRAM/KILOGRAM, DAILY
     Route: 065

REACTIONS (3)
  - Therapeutic product effect incomplete [Unknown]
  - Steroid dependence [Unknown]
  - Disease progression [Unknown]
